FAERS Safety Report 5023974-7 (Version None)
Quarter: 2006Q2

REPORT INFORMATION
  Report Type: 
  Country: None (occurrence: None)
  Receive Date: 20060612
  Receipt Date: 20060602
  Transmission Date: 20061013
  Serious: Yes (Other)
  Sender: FDA-Public Use
  Company Number: FR-ABBOTT-06P-056-0334940-00

PATIENT
  Sex: Female

DRUGS (1)
  1. KALETRA [Suspect]
     Indication: HIV INFECTION

REACTIONS (2)
  - HALLUCINATION [None]
  - VISUAL DISTURBANCE [None]
